FAERS Safety Report 13468947 (Version 1)
Quarter: 2017Q2

REPORT INFORMATION
  Report Type: Report from Study
  Country: US (occurrence: BR)
  Receive Date: 20170421
  Receipt Date: 20170421
  Transmission Date: 20170830
  Serious: Yes (Other)
  Sender: FDA-Public Use
  Company Number: US-SUNOVION-2017SUN001708

PATIENT
  Sex: Male

DRUGS (3)
  1. CLENIL [Concomitant]
     Active Substance: BECLOMETHASONE DIPROPIONATE
     Dosage: 200 MG, UNK
  2. AEROGOLD [Concomitant]
  3. INDACATEROL AND GLYCOPYRROLATE [Suspect]
     Active Substance: GLYCOPYRROLATE\INDACATEROL MALEATE
     Indication: EMPHYSEMA
     Dosage: 1 DF, BID
     Route: 065

REACTIONS (10)
  - Feeling abnormal [Unknown]
  - Angina pectoris [Unknown]
  - Fatigue [Recovering/Resolving]
  - Drug prescribing error [Unknown]
  - Pneumonia [Unknown]
  - Dry throat [Unknown]
  - Prostatic disorder [Unknown]
  - Productive cough [Unknown]
  - Heart rate increased [Unknown]
  - Gait disturbance [Unknown]
